FAERS Safety Report 8602525-1 (Version None)
Quarter: 2012Q3

REPORT INFORMATION
  Report Type: 
  Country: None (occurrence: None)
  Receive Date: 20120817
  Receipt Date: 20120809
  Transmission Date: 20120928
  Serious: Yes (Hospitalization)
  Sender: FDA-Public Use
  Company Number: FR-B.I. PHARMACEUTICALS,INC./RIDGEFIELD-2012-FF-00540FF

PATIENT
  Sex: Male
  Weight: 120 kg

DRUGS (6)
  1. NEXIUM [Concomitant]
     Dosage: 20 MG
     Route: 048
  2. ALDACTAZINE [Concomitant]
     Route: 048
  3. PRADAXA [Suspect]
     Indication: ATRIAL FIBRILLATION
     Dosage: 220 MG
     Route: 048
     Dates: start: 20120401, end: 20120401
  4. JANUVIA [Concomitant]
     Dosage: 100 MG
     Route: 048
  5. ATENOLOL [Concomitant]
     Dosage: 100 MG
     Route: 048
  6. PERMIXON [Concomitant]
     Dosage: 160 MG
     Route: 048

REACTIONS (4)
  - RASH [None]
  - GENERAL PHYSICAL HEALTH DETERIORATION [None]
  - LEUKOCYTOSIS [None]
  - INFLAMMATION [None]
